FAERS Safety Report 25203887 (Version 1)
Quarter: 2025Q2

REPORT INFORMATION
  Report Type: Spontaneous
  Country: CN (occurrence: CN)
  Receive Date: 20250416
  Receipt Date: 20250416
  Transmission Date: 20250716
  Serious: Yes (Hospitalization, Other)
  Sender: GLAND PHARMA
  Company Number: CN-GLANDPHARMA-CN-2025GLNLIT00996

PATIENT
  Age: 52 Year
  Sex: Female

DRUGS (21)
  1. ZIPRASIDONE MESYLATE [Suspect]
     Active Substance: ZIPRASIDONE MESYLATE
     Indication: Schizophrenia
     Route: 065
  2. RISPERIDONE [Suspect]
     Active Substance: RISPERIDONE
     Indication: Schizophrenia
     Route: 065
  3. RISPERIDONE [Suspect]
     Active Substance: RISPERIDONE
     Route: 065
  4. ARIPIPRAZOLE [Suspect]
     Active Substance: ARIPIPRAZOLE
     Indication: Schizophrenia
     Route: 065
  5. SULPIRIDE [Suspect]
     Active Substance: SULPIRIDE
     Indication: Schizophrenia
     Route: 065
  6. OLANZAPINE [Suspect]
     Active Substance: OLANZAPINE
     Indication: Schizophrenia
     Route: 065
  7. CLOZAPINE [Suspect]
     Active Substance: CLOZAPINE
     Indication: Schizophrenia
     Route: 065
  8. CLOZAPINE [Suspect]
     Active Substance: CLOZAPINE
     Route: 065
  9. CLOZAPINE [Suspect]
     Active Substance: CLOZAPINE
     Route: 065
  10. TRIHEXYPHENIDYL [Concomitant]
     Active Substance: TRIHEXYPHENIDYL
     Indication: Product used for unknown indication
     Route: 065
  11. TRIHEXYPHENIDYL [Concomitant]
     Active Substance: TRIHEXYPHENIDYL
     Route: 065
  12. ORYZANOL [Concomitant]
     Active Substance: GAMMA ORYZANOL
     Indication: Product used for unknown indication
     Route: 065
  13. JIANG ZHI NING [Concomitant]
     Indication: Product used for unknown indication
     Route: 065
  14. PROPRANOLOL [Concomitant]
     Active Substance: PROPRANOLOL HYDROCHLORIDE
     Indication: Product used for unknown indication
     Route: 065
  15. PROPRANOLOL [Concomitant]
     Active Substance: PROPRANOLOL HYDROCHLORIDE
     Route: 065
  16. INOSINE [Concomitant]
     Active Substance: INOSINE
     Indication: Product used for unknown indication
     Route: 065
  17. ADENOSINE TRIPHOSPHATE DISODIUM [Concomitant]
     Active Substance: ADENOSINE TRIPHOSPHATE DISODIUM
     Indication: Product used for unknown indication
     Route: 065
  18. DAN SHEN COMPOUND [Concomitant]
     Indication: Cardiovascular disorder
     Route: 065
  19. YI XIN TONG [Concomitant]
     Route: 065
  20. YI XIN TONG [Concomitant]
     Indication: Hyperlipidaemia
  21. BIAN TONG [Concomitant]
     Indication: Product used for unknown indication
     Route: 065

REACTIONS (13)
  - Toxicity to various agents [Recovered/Resolved]
  - Distractibility [Recovered/Resolved]
  - Delusion of reference [Recovered/Resolved]
  - Jealous delusion [Recovered/Resolved]
  - Memory impairment [Recovered/Resolved]
  - Anosognosia [Recovered/Resolved]
  - Salivary hypersecretion [Recovered/Resolved]
  - Psychomotor retardation [Recovered/Resolved]
  - Abulia [Recovered/Resolved]
  - Anxiety [Recovered/Resolved]
  - Constipation [Recovered/Resolved]
  - Intentional product misuse [Unknown]
  - Overdose [Unknown]

NARRATIVE: CASE EVENT DATE: 20220101
